FAERS Safety Report 7310017-5 (Version None)
Quarter: 2011Q1

REPORT INFORMATION
  Report Type: 
  Country: None (occurrence: None)
  Receive Date: 20110224
  Receipt Date: 20101206
  Transmission Date: 20110831
  Serious: Yes (Other)
  Sender: FDA-Public Use
  Company Number: US-BAYER-201027088NA

PATIENT
  Sex: Female
  Weight: 57 kg

DRUGS (5)
  1. MULTI-VITAMINS [Concomitant]
  2. TYLENOL W/ CODEINE NO. 3 [Concomitant]
  3. MIRENA [Suspect]
     Indication: FEMALE STERILISATION
     Dosage: FREQUENCY: CONTINUOUS
     Route: 015
     Dates: start: 20071219
  4. BETADINE [Concomitant]
     Indication: FEMALE STERILISATION
  5. UNCODEABLE ^UNCLASSIFIABLE^ [Suspect]
     Indication: POST PROCEDURAL COMPLICATION
     Dosage: UNK UNK, ONCE

REACTIONS (17)
  - OVARIAN MASS [None]
  - WEIGHT INCREASED [None]
  - DIZZINESS POSTURAL [None]
  - PELVIC DISCOMFORT [None]
  - DEVICE EXPULSION [None]
  - ABORTION SPONTANEOUS [None]
  - CONSTIPATION [None]
  - BLOOD PRESSURE INCREASED [None]
  - ABDOMINAL PAIN [None]
  - MENSTRUATION IRREGULAR [None]
  - PELVIC PAIN [None]
  - DEVICE DISLOCATION [None]
  - VAGINAL DISCHARGE [None]
  - COMPLICATION OF DEVICE REMOVAL [None]
  - ABDOMINAL DISCOMFORT [None]
  - ABDOMINAL DISTENSION [None]
  - ANAEMIA [None]
